FAERS Safety Report 21802652 (Version 1)
Quarter: 2022Q4

REPORT INFORMATION
  Report Type: Report from Study
  Country: US (occurrence: US)
  Receive Date: 20221231
  Receipt Date: 20221231
  Transmission Date: 20230113
  Serious: No
  Sender: FDA-Public Use
  Company Number: US-002147023-NVSC2022US301743

PATIENT
  Sex: Female
  Weight: 139.25 kg

DRUGS (2)
  1. COSENTYX [Suspect]
     Active Substance: SECUKINUMAB
     Indication: Psoriasis
     Dosage: 150 MG, QW  (WEEKS 0,1,2,3, AND 4 FOLLOWED BY 150 MG EVERY 4 WEEKS)
     Route: 058
     Dates: start: 202212
  2. COSENTYX [Suspect]
     Active Substance: SECUKINUMAB
     Indication: Psoriatic arthropathy

REACTIONS (1)
  - Psoriasis [Unknown]
